FAERS Safety Report 8123842-8 (Version None)
Quarter: 2012Q1

REPORT INFORMATION
  Report Type: 
  Country: None (occurrence: None)
  Receive Date: 20120209
  Receipt Date: 20120127
  Transmission Date: 20120608
  Serious: Yes (Life-Threatening, Other)
  Sender: FDA-Public Use
  Company Number: FR-AMGEN-FRASP2011066283

PATIENT
  Age: 74 Year
  Sex: Female
  Weight: 55 kg

DRUGS (4)
  1. ENBREL [Suspect]
     Indication: PRODUCT USED FOR UNKNOWN INDICATION
     Dosage: 50 MG, WEEKLY
     Dates: start: 20040101
  2. ENBREL [Suspect]
     Dosage: 25 MG, WEEKLY
  3. ACETAMINOPHEN [Concomitant]
     Dosage: 4 G, DAILY
     Route: 048
     Dates: start: 20040101
  4. ENBREL [Suspect]
     Dosage: 25 MG, 3 TIMES MONTHLY
     Route: 058
     Dates: start: 20050321, end: 20111110

REACTIONS (1)
  - BREAST CANCER [None]
